FAERS Safety Report 16257392 (Version 1)
Quarter: 2019Q2

REPORT INFORMATION
  Report Type: Spontaneous
  Country: FR (occurrence: FR)
  Receive Date: 20190430
  Receipt Date: 20190430
  Transmission Date: 20190711
  Serious: Yes (Hospitalization, Other)
  Sender: FDA-Public Use
  Company Number: FR-IMPAX LABORATORIES, LLC-2019-IPXL-00876

PATIENT
  Age: 60 Year
  Sex: Male

DRUGS (18)
  1. BACLOFEN. [Suspect]
     Active Substance: BACLOFEN
     Indication: BINGE EATING
     Dosage: UNK
     Route: 065
     Dates: start: 2016
  2. SPIRONOLACTONE. [Concomitant]
     Active Substance: SPIRONOLACTONE
     Indication: PRODUCT USED FOR UNKNOWN INDICATION
     Dosage: UNK
     Route: 065
  3. ASPIRIN (E.C.) [Concomitant]
     Active Substance: ASPIRIN
     Indication: PRODUCT USED FOR UNKNOWN INDICATION
     Dosage: UNK
     Route: 065
  4. LERCANIDIPINE [Concomitant]
     Active Substance: LERCANIDIPINE
     Indication: PRODUCT USED FOR UNKNOWN INDICATION
     Dosage: UNK
     Route: 065
  5. BACLOFEN. [Suspect]
     Active Substance: BACLOFEN
     Dosage: 150 MILLIGRAM, DAILY
     Route: 065
  6. BISOPROLOL [Concomitant]
     Active Substance: BISOPROLOL
     Indication: PRODUCT USED FOR UNKNOWN INDICATION
     Dosage: UNK
     Route: 065
  7. FLECAINIDE [Concomitant]
     Active Substance: FLECAINIDE
     Indication: PRODUCT USED FOR UNKNOWN INDICATION
     Dosage: UNK
     Route: 065
  8. HYDROXYZINE [Concomitant]
     Active Substance: HYDROXYZINE HYDROCHLORIDE
     Indication: PRODUCT USED FOR UNKNOWN INDICATION
     Dosage: 25 MILLIGRAM
     Route: 065
  9. BACLOFEN. [Suspect]
     Active Substance: BACLOFEN
     Dosage: UNK, 180 TO 200 MG/D
     Route: 065
  10. NEVIRAPINE. [Concomitant]
     Active Substance: NEVIRAPINE
     Indication: PRODUCT USED FOR UNKNOWN INDICATION
     Dosage: UNK
     Route: 065
  11. BACLOFEN. [Suspect]
     Active Substance: BACLOFEN
     Dosage: 60 MILLIGRAM, 5 /DAY
     Route: 065
  12. BACLOFEN. [Suspect]
     Active Substance: BACLOFEN
     Dosage: UNK,  REGIMEN UPTO 300 MG/D
     Route: 065
  13. TEMISARTAN [Concomitant]
     Indication: PRODUCT USED FOR UNKNOWN INDICATION
     Dosage: UNK
     Route: 065
  14. RILMENIDINE [Concomitant]
     Active Substance: RILMENIDINE
     Indication: PRODUCT USED FOR UNKNOWN INDICATION
     Dosage: UNK
     Route: 065
  15. MIANSERINE [MIANSERIN] [Concomitant]
     Indication: PRODUCT USED FOR UNKNOWN INDICATION
     Dosage: 10 MILLIGRAM
     Route: 065
  16. BACLOFEN. [Suspect]
     Active Substance: BACLOFEN
     Dosage: 70 MILLIGRAM, QD
     Route: 065
  17. BACLOFEN. [Suspect]
     Active Substance: BACLOFEN
     Dosage: UNK, 120 TO 140MG/D
     Route: 065
  18. ABACAVIR + LAMIVUDIN [Concomitant]
     Active Substance: ABACAVIR\LAMIVUDINE
     Indication: PRODUCT USED FOR UNKNOWN INDICATION
     Dosage: UNK
     Route: 065

REACTIONS (5)
  - Confusional state [Recovered/Resolved]
  - Prescribed overdose [Unknown]
  - Wrong technique in product usage process [Unknown]
  - Off label use [Unknown]
  - Acute psychosis [Recovered/Resolved]
